FAERS Safety Report 17700833 (Version 1)
Quarter: 2020Q2

REPORT INFORMATION
  Report Type: Spontaneous
  Country: US (occurrence: US)
  Receive Date: 20200423
  Receipt Date: 20200423
  Transmission Date: 20200714
  Serious: No
  Sender: FDA-Public Use
  Company Number: US-BAUSCH-BL-2020-006369

PATIENT
  Sex: Male

DRUGS (1)
  1. JUBLIA [Suspect]
     Active Substance: EFINACONAZOLE
     Indication: ONYCHOMYCOSIS
     Dosage: STARTED ABOUT A ONE AND HALF YEARS
     Route: 061
     Dates: start: 2018

REACTIONS (6)
  - Skin disorder [Not Recovered/Not Resolved]
  - Application site pain [Unknown]
  - Drug ineffective [Unknown]
  - Nail growth abnormal [Not Recovered/Not Resolved]
  - Product use issue [Unknown]
  - Skin hypertrophy [Not Recovered/Not Resolved]

NARRATIVE: CASE EVENT DATE: 2019
